FAERS Safety Report 19846968 (Version 1)
Quarter: 2021Q3

REPORT INFORMATION
  Report Type: Spontaneous
  Country: US (occurrence: US)
  Receive Date: 20210917
  Receipt Date: 20210917
  Transmission Date: 20211014
  Serious: No
  Sender: FDA-Public Use
  Company Number: None

PATIENT
  Age: 37 Year
  Sex: Female
  Weight: 49.05 kg

DRUGS (1)
  1. INJECTAFER [Suspect]
     Active Substance: FERRIC CARBOXYMALTOSE
     Indication: IRON DEFICIENCY ANAEMIA
     Dosage: ?          OTHER FREQUENCY:WEEKLY X 2 WEEKS;?
     Route: 042
     Dates: start: 20210917, end: 20210917

REACTIONS (4)
  - Paraesthesia [None]
  - Hypoaesthesia [None]
  - Pruritus [None]
  - Somnolence [None]

NARRATIVE: CASE EVENT DATE: 20210917
